FAERS Safety Report 21256877 (Version 1)
Quarter: 2022Q3

REPORT INFORMATION
  Report Type: Report from Study
  Country: US (occurrence: US)
  Receive Date: 20220826
  Receipt Date: 20220826
  Transmission Date: 20221027
  Serious: Yes (Hospitalization, Other)
  Sender: FDA-Public Use
  Company Number: US-GILEAD-2022-0594766

PATIENT
  Age: 62 Year
  Sex: Female

DRUGS (3)
  1. AZTREONAM LYSINE [Suspect]
     Active Substance: AZTREONAM LYSINE
     Indication: Lung transplant
     Dosage: 75 MG, TID FOR 28 DAYS ON AND 28 DAYS OFF
     Route: 055
     Dates: start: 202112
  2. TACROLIMUS [Concomitant]
     Active Substance: TACROLIMUS
     Dosage: 1MG BY MOUTH TWICE DAILY
     Dates: start: 202202
  3. MYCOPHENOLIC ACID [Concomitant]
     Active Substance: MYCOPHENOLIC ACID
     Dosage: 360MG BY MOUTH TWICE DAILY
     Dates: start: 202108

REACTIONS (2)
  - Vomiting [Unknown]
  - Sepsis [Unknown]
